FAERS Safety Report 6311711-5 (Version None)
Quarter: 2009Q3

REPORT INFORMATION
  Report Type: 
  Country: None (occurrence: None)
  Receive Date: 20090817
  Receipt Date: 20090811
  Transmission Date: 20100115
  Serious: Yes (Death, Hospitalization, Other)
  Sender: FDA-Public Use
  Company Number: PHEH2009US08817

PATIENT
  Sex: Female
  Weight: 65.76 kg

DRUGS (4)
  1. EXJADE [Suspect]
     Indication: APLASTIC ANAEMIA
     Dosage: 1000 MG, BID
     Route: 048
     Dates: start: 20080101
  2. EXJADE [Suspect]
     Indication: IRON OVERLOAD
  3. CIPRO [Concomitant]
     Indication: PROPHYLAXIS
     Dosage: UNK, UNK
  4. MARINOL [Concomitant]
     Indication: APPETITE DISORDER
     Dosage: UNK, UNK

REACTIONS (26)
  - ANXIETY [None]
  - APLASTIC ANAEMIA [None]
  - ASTHENIA [None]
  - CONFUSIONAL STATE [None]
  - COUGH [None]
  - DEPRESSION [None]
  - DISEASE PROGRESSION [None]
  - DYSPNOEA [None]
  - EXCORIATION [None]
  - FALL [None]
  - GINGIVAL INFECTION [None]
  - GINGIVAL PAIN [None]
  - HALLUCINATION [None]
  - HYPERGLYCAEMIA [None]
  - HYPOKALAEMIA [None]
  - IRON OVERLOAD [None]
  - LEUKOPENIA [None]
  - LUNG INFECTION PSEUDOMONAL [None]
  - MUCOSAL INFLAMMATION [None]
  - NEUTROPENIA [None]
  - PANCYTOPENIA [None]
  - PLEURAL EFFUSION [None]
  - PNEUMONIA [None]
  - PULMONARY HAEMORRHAGE [None]
  - PYREXIA [None]
  - THROMBOCYTOPENIA [None]
